FAERS Safety Report 5192362-5 (Version None)
Quarter: 2006Q4

REPORT INFORMATION
  Report Type: 
  Country: None (occurrence: None)
  Receive Date: 20061227
  Receipt Date: 20061215
  Transmission Date: 20070319
  Serious: Yes (Hospitalization)
  Sender: FDA-Public Use
  Company Number: SE-PFIZER INC-2006154295

PATIENT
  Sex: Male

DRUGS (13)
  1. XALATAN [Suspect]
     Indication: GLAUCOMA
     Route: 031
  2. OXIS [Concomitant]
     Route: 055
  3. ENALAPRIL MALEATE [Concomitant]
  4. ATROVENT [Concomitant]
  5. NITROMEX [Concomitant]
  6. LANACRIST [Concomitant]
     Route: 048
  7. PULMICORT [Concomitant]
  8. DUPHALAC [Concomitant]
  9. TROMBYL [Concomitant]
     Route: 048
  10. IMOVANE [Concomitant]
     Route: 048
  11. TOREM [Concomitant]
  12. ACETYLCYSTEINE [Concomitant]
  13. LANTUS [Concomitant]

REACTIONS (1)
  - BRONCHIAL DISORDER [None]
